FAERS Safety Report 4907289-0 (Version None)
Quarter: 2006Q1

REPORT INFORMATION
  Report Type: 
  Country: None (occurrence: None)
  Receive Date: 20060207
  Receipt Date: 20060125
  Transmission Date: 20060701
  Serious: Yes (Hospitalization, Other)
  Sender: FDA-Public Use
  Company Number: 2006012945

PATIENT
  Age: 61 Year
  Sex: Female
  Weight: 77.1115 kg

DRUGS (2)
  1. LIPITOR [Suspect]
     Indication: BLOOD CHOLESTEROL INCREASED
     Dosage: 5 MG (5 MG, 1 IN 1 D)
     Dates: start: 20050101
  2. COREG [Concomitant]

REACTIONS (9)
  - ARTHROPATHY [None]
  - DIABETES MELLITUS [None]
  - ECHOCARDIOGRAM ABNORMAL [None]
  - HEART RATE DECREASED [None]
  - INCISION SITE COMPLICATION [None]
  - OSTEOARTHRITIS [None]
  - POSTOPERATIVE INFECTION [None]
  - STAPHYLOCOCCAL INFECTION [None]
  - SURGICAL PROCEDURE REPEATED [None]
